FAERS Safety Report 8833251 (Version 1)
Quarter: 2012Q4

REPORT INFORMATION
  Report Type: 
  Country: BR (occurrence: BR)
  Receive Date: 20121010
  Receipt Date: 20121010
  Transmission Date: 20130627
  Serious: Yes (Death, Other)
  Sender: FDA-Public Use
  Company Number: PHHY2012BR088283

PATIENT

DRUGS (3)
  1. GLIVEC [Suspect]
     Dates: start: 2005, end: 2011
  2. SUTENT [Suspect]
     Dosage: 50 mg, UNK
     Dates: start: 20110215
  3. METFORMIN [Concomitant]
     Indication: DIABETES MELLITUS
     Dosage: 850 mg, UNK

REACTIONS (7)
  - Multi-organ failure [Fatal]
  - Hepatic neoplasm [Unknown]
  - Spinal osteoarthritis [Unknown]
  - Diabetes mellitus inadequate control [Unknown]
  - Blood pressure abnormal [Unknown]
  - Back pain [Unknown]
  - Retching [Unknown]
